FAERS Safety Report 8502121-0 (Version None)
Quarter: 2012Q3

REPORT INFORMATION
  Report Type: 
  Country: None (occurrence: None)
  Receive Date: 20120711
  Receipt Date: 20120629
  Transmission Date: 20120928
  Serious: No
  Sender: FDA-Public Use
  Company Number: US-JNJFOC-20120701052

PATIENT
  Sex: Male
  Weight: 86.18 kg

DRUGS (6)
  1. DURAGESIC-100 [Suspect]
     Indication: BACK PAIN
     Route: 062
     Dates: start: 20120601
  2. DURAGESIC-100 [Suspect]
     Route: 062
     Dates: start: 20111201, end: 20111201
  3. DURAGESIC-100 [Suspect]
     Route: 062
     Dates: start: 20111201, end: 20120201
  4. DURAGESIC-100 [Suspect]
     Indication: INTERVERTEBRAL DISC PROTRUSION
     Route: 062
     Dates: start: 20111201, end: 20120201
  5. DURAGESIC-100 [Suspect]
     Route: 062
     Dates: start: 20120601
  6. DURAGESIC-100 [Suspect]
     Route: 062
     Dates: start: 20111201, end: 20111201

REACTIONS (4)
  - DRUG INEFFECTIVE [None]
  - PRODUCT QUALITY ISSUE [None]
  - WRONG TECHNIQUE IN DRUG USAGE PROCESS [None]
  - PRURITUS [None]
